FAERS Safety Report 18385772 (Version 1)
Quarter: 2020Q4

REPORT INFORMATION
  Report Type: Spontaneous
  Country: US (occurrence: US)
  Receive Date: 20201015
  Receipt Date: 20201015
  Transmission Date: 20210114
  Serious: No
  Sender: FDA-Public Use
  Company Number: US-TEVA-2020-US-1839394

PATIENT
  Sex: Female

DRUGS (13)
  1. GABAPENTIN 100 MG [Concomitant]
     Active Substance: GABAPENTIN
  2. LOSARTAN-HYDROCHLOROTHIAZIDE [Concomitant]
     Active Substance: HYDROCHLOROTHIAZIDE\LOSARTAN
  3. AUSTEDO [Suspect]
     Active Substance: DEUTETRABENAZINE
     Indication: TARDIVE DYSKINESIA
     Dosage: INITIAL START
     Route: 048
     Dates: start: 201907
  4. AMANTADINE HCL 100 MG [Concomitant]
  5. AUSTEDO [Suspect]
     Active Substance: DEUTETRABENAZINE
     Dosage: 30 MILLIGRAM DAILY; 6 MG + 9 MG TABLETS TWICE PER DAY
     Route: 048
  6. AMLODIPINE BESYLATE. [Concomitant]
     Active Substance: AMLODIPINE BESYLATE
  7. ISOSORBIDE MONONITRATE. [Concomitant]
     Active Substance: ISOSORBIDE MONONITRATE
  8. MELOXICAM 7.5 MG [Concomitant]
     Active Substance: MELOXICAM
  9. ATORVASTATIN CALCIUM 10 MG [Concomitant]
  10. CLONAZEPAM 0.5 MG [Concomitant]
     Active Substance: CLONAZEPAM
  11. POTASSIUM 595(99)MG [Concomitant]
  12. OMEPRAZOLE 20 MG [Concomitant]
     Active Substance: OMEPRAZOLE
     Dosage: TABLET DR
  13. FLUOXETINE HCL 10 MG [Concomitant]

REACTIONS (4)
  - Swollen tongue [Not Recovered/Not Resolved]
  - Stomatitis [Not Recovered/Not Resolved]
  - Speech disorder [Not Recovered/Not Resolved]
  - Bruxism [Not Recovered/Not Resolved]
